FAERS Safety Report 9750426 (Version 1)
Quarter: 2013Q4

REPORT INFORMATION
  Report Type: Spontaneous
  Country: US (occurrence: US)
  Receive Date: 20131212
  Receipt Date: 20131212
  Transmission Date: 20140711
  Serious: No
  Sender: FDA-Public Use
  Company Number: US-TEVA-396583USA

PATIENT
  Age: 40 Year
  Sex: Female
  Weight: 85.35 kg

DRUGS (2)
  1. PARAGARD 380A [Suspect]
     Indication: CONTRACEPTION
     Route: 015
     Dates: start: 20120905, end: 20130403
  2. PROCARDIA XL [Concomitant]
     Indication: HYPERTENSION
     Dosage: 90
     Route: 048
     Dates: start: 20130306

REACTIONS (4)
  - Menorrhagia [Recovered/Resolved]
  - Uterine spasm [Recovered/Resolved]
  - Sensation of pressure [Recovered/Resolved]
  - Device expulsion [Recovered/Resolved]
